FAERS Safety Report 9031193 (Version 1)
Quarter: 2013Q1

REPORT INFORMATION
  Report Type: Spontaneous
  Country: US (occurrence: US)
  Receive Date: 20130123
  Receipt Date: 20130123
  Transmission Date: 20140127
  Serious: Yes (Other)
  Sender: FDA-Public Use
  Company Number: CHPA2013US001196

PATIENT
  Age: 32 Year
  Sex: Female

DRUGS (1)
  1. PREVACID 24HR 15MG [Suspect]
     Indication: DYSPEPSIA
     Dosage: 15 MG, QD
     Route: 048
     Dates: start: 20130104, end: 20130104

REACTIONS (4)
  - Rash [Recovered/Resolved]
  - Inflammation [Unknown]
  - Off label use [Unknown]
  - Incorrect drug administration duration [Unknown]
